FAERS Safety Report 5418325-X (Version None)
Quarter: 2007Q3

REPORT INFORMATION
  Report Type: 
  Country: None (occurrence: None)
  Receive Date: 20070817
  Receipt Date: 20070814
  Transmission Date: 20080115
  Serious: Yes (Other)
  Sender: FDA-Public Use
  Company Number: PT-BRISTOL-MYERS SQUIBB COMPANY-13825799

PATIENT
  Age: 54 Year
  Sex: Male

DRUGS (5)
  1. REYATAZ [Suspect]
     Indication: HIV INFECTION
     Route: 048
     Dates: start: 20060405
  2. NORVIR [Interacting]
     Indication: HIV INFECTION
     Route: 048
     Dates: start: 20060405
  3. ZERIT [Concomitant]
     Indication: HIV INFECTION
     Route: 048
     Dates: start: 20060405
  4. EMTRIVA [Concomitant]
     Indication: HIV INFECTION
     Route: 048
     Dates: start: 20060405
  5. LIPANOR [Concomitant]
     Indication: HYPERTRIGLYCERIDAEMIA
     Route: 048
     Dates: start: 20070801

REACTIONS (1)
  - RENAL FAILURE [None]
